FAERS Safety Report 10061833 (Version 1)
Quarter: 2014Q2

REPORT INFORMATION
  Report Type: Spontaneous
  Country: US (occurrence: US)
  Receive Date: 20140407
  Receipt Date: 20140407
  Transmission Date: 20141212
  Serious: No
  Sender: FDA-Public Use
  Company Number: US-BIOGENIDEC-2014BI031188

PATIENT
  Age: 54 Year
  Sex: Male

DRUGS (11)
  1. TYSABRI [Suspect]
     Indication: MULTIPLE SCLEROSIS
     Route: 042
     Dates: start: 20070605, end: 20080408
  2. TYSABRI [Suspect]
     Indication: MULTIPLE SCLEROSIS
     Route: 042
     Dates: start: 20081105, end: 20131101
  3. AVONEX [Concomitant]
     Indication: MULTIPLE SCLEROSIS
     Route: 030
     Dates: start: 20020104
  4. TECFIDERA [Concomitant]
     Indication: MULTIPLE SCLEROSIS
     Route: 048
  5. BENZONATATE [Concomitant]
  6. RESTORIL [Concomitant]
  7. BACLOFEN [Concomitant]
  8. AMANTADINE [Concomitant]
  9. CITALOPRAM [Concomitant]
  10. ALFUZOSIN [Concomitant]
  11. ASPIRIN [Concomitant]

REACTIONS (10)
  - Neurogenic bladder [Unknown]
  - Seborrhoeic dermatitis [Unknown]
  - Insomnia [Unknown]
  - Piriformis syndrome [Unknown]
  - Large intestine polyp [Unknown]
  - Decubitus ulcer [Unknown]
  - Fibula fracture [Unknown]
  - Cellulitis [Unknown]
  - Diverticulum [Unknown]
  - Colon adenoma [Unknown]
